FAERS Safety Report 20163027 (Version 3)
Quarter: 2022Q1

REPORT INFORMATION
  Report Type: Spontaneous
  Country: PL (occurrence: PL)
  Receive Date: 20211209
  Receipt Date: 20220209
  Transmission Date: 20220423
  Serious: Yes (Other)
  Sender: FDA-Public Use
  Company Number: PL-SUN PHARMACEUTICAL INDUSTRIES LTD-2021RR-319711

PATIENT
  Age: 42 Year
  Sex: Female

DRUGS (13)
  1. VENLAFAXINE [Suspect]
     Active Substance: VENLAFAXINE HYDROCHLORIDE
     Indication: Depression
     Dosage: DOSES UP TO 75 MG PER DAY
     Route: 065
  2. MIRTAZAPINE [Suspect]
     Active Substance: MIRTAZAPINE
     Indication: Depression
     Dosage: DOSES UP TO 30 MG PER DAY
     Route: 065
  3. OLANZAPINE [Suspect]
     Active Substance: OLANZAPINE
     Indication: Bipolar disorder
     Dosage: 20 MILLIGRAM PER NIGHT
     Route: 065
     Dates: start: 2013
  4. CARBAMAZEPINE [Suspect]
     Active Substance: CARBAMAZEPINE
     Indication: Bipolar disorder
     Dosage: DOSES UP TO 600 MG PER DAY
     Route: 065
     Dates: start: 2013
  5. CARBAMAZEPINE [Suspect]
     Active Substance: CARBAMAZEPINE
     Dosage: 2 TIMES 600 MG PER DAY
     Route: 065
     Dates: start: 201707
  6. QUETIAPINE [Suspect]
     Active Substance: QUETIAPINE
     Indication: Bipolar disorder
     Dosage: UP TO 600 MG PER DAY
     Route: 065
     Dates: start: 2015
  7. QUETIAPINE [Suspect]
     Active Substance: QUETIAPINE
     Dosage: UP TO 700 MG PER DAY
     Route: 065
     Dates: start: 202107
  8. QUETIAPINE [Suspect]
     Active Substance: QUETIAPINE
     Dosage: 400 MILLIGRAM, DAILY, EXTENDED-RELEASE
     Route: 065
  9. QUETIAPINE [Suspect]
     Active Substance: QUETIAPINE
     Dosage: 100 MILLIGRAM, OF AN IMMEDIATE-RELEASE FORMULATION
     Route: 065
  10. CITALOPRAM [Suspect]
     Active Substance: CITALOPRAM HYDROBROMIDE
     Indication: Depression
     Dosage: UP TO 20 MG PER DAY
     Route: 065
  11. LAMOTRIGINE [Suspect]
     Active Substance: LAMOTRIGINE
     Indication: Product used for unknown indication
     Dosage: 2 TIMES 100 MG PER DAY
     Route: 065
     Dates: start: 201707
  12. LITHIUM [Suspect]
     Active Substance: LITHIUM
     Indication: Bipolar disorder
     Dosage: UP TO 1000 MG
     Route: 065
  13. PROPRANOLOL [Concomitant]
     Active Substance: PROPRANOLOL HYDROCHLORIDE
     Indication: Tremor
     Dosage: 10 MILLIGRAM, DAILY

REACTIONS (4)
  - Mania [Unknown]
  - Depression [Unknown]
  - Drug ineffective [Unknown]
  - Tremor [Recovering/Resolving]
